FAERS Safety Report 7261999-1 (Version None)
Quarter: 2011Q1

REPORT INFORMATION
  Report Type: 
  Country: None (occurrence: None)
  Receive Date: 20110130
  Receipt Date: 20101103
  Transmission Date: 20110831
  Serious: Yes (Hospitalization)
  Sender: FDA-Public Use
  Company Number: US-ABBOTT-10P-163-0683408-00

PATIENT
  Age: 74 Year
  Sex: Male

DRUGS (15)
  1. VITAMIN B-12 [Concomitant]
     Indication: ANAEMIA
     Route: 050
  2. METOPROLOL [Concomitant]
     Indication: HYPERTENSION
     Dosage: 1/2 TABLET PER DAY
     Route: 048
  3. HYDROCODONE [Concomitant]
     Indication: PAIN
     Dosage: 7.5/750 MG
     Route: 048
  4. CHROMAGEN [Concomitant]
     Indication: ANAEMIA
     Route: 048
  5. LIPITOR [Concomitant]
     Indication: BLOOD CHOLESTEROL INCREASED
     Route: 048
  6. LYRICA [Concomitant]
     Indication: PERIPHERAL VASCULAR DISORDER
     Route: 048
  7. HUMIRA [Suspect]
     Indication: CROHN'S DISEASE
     Dates: start: 20080901, end: 20081001
  8. GEMFIBROZIL [Concomitant]
     Indication: HYPERLIPIDAEMIA
     Route: 048
  9. INDAPAMIDE [Concomitant]
     Indication: DIURETIC THERAPY
     Route: 048
  10. HUMIRA [Suspect]
     Dates: start: 20101004
  11. EVOXAC [Concomitant]
     Indication: DRY MOUTH
     Route: 048
  12. PLAVIX [Suspect]
     Indication: PRODUCT USED FOR UNKNOWN INDICATION
     Dates: start: 20080101, end: 20080101
  13. NEXIUM [Concomitant]
     Indication: DYSPEPSIA
     Route: 048
  14. ATACAND [Concomitant]
     Indication: HYPERTENSION
     Dosage: 1/2 TABLET
     Route: 048
  15. METHOCADAMOL [Concomitant]
     Indication: BACK PAIN
     Route: 048

REACTIONS (2)
  - GASTROINTESTINAL HAEMORRHAGE [None]
  - ANAEMIA [None]
